FAERS Safety Report 23739542 (Version 1)
Quarter: 2024Q2

REPORT INFORMATION
  Report Type: Other
  Country: CA (occurrence: None)
  Receive Date: 20240413
  Receipt Date: 20240413
  Transmission Date: 20240716
  Serious: No
  Sender: FDA-Public Use
  Company Number: CA-ROCHE-3166323

PATIENT
  Age: 26 Year
  Sex: Female

DRUGS (1)
  1. OCREVUS [Suspect]
     Active Substance: OCRELIZUMAB
     Indication: Relapsing-remitting multiple sclerosis
     Dosage: THEN 600 MG EVERY 6 MONTHS
     Route: 042
     Dates: start: 20220104

REACTIONS (23)
  - Nausea [Unknown]
  - Dizziness [Unknown]
  - Pyrexia [Unknown]
  - Infective glossitis [Unknown]
  - Cyst [Recovered/Resolved]
  - Tinea infection [Unknown]
  - Swollen tongue [Unknown]
  - Rash [Unknown]
  - Urinary tract infection [Recovering/Resolving]
  - Vomiting [Recovered/Resolved]
  - Electric shock [Not Recovered/Not Resolved]
  - Nasopharyngitis [Recovered/Resolved]
  - Fatigue [Recovered/Resolved]
  - Decreased appetite [Recovered/Resolved]
  - Menstruation irregular [Recovered/Resolved]
  - Vaginal discharge [Recovered/Resolved]
  - Gastroenteritis viral [Recovering/Resolving]
  - Lower respiratory tract infection [Recovering/Resolving]
  - Fungal infection [Recovering/Resolving]
  - Somnolence [Unknown]
  - Muscular weakness [Unknown]
  - Memory impairment [Unknown]
  - Brain fog [Unknown]

NARRATIVE: CASE EVENT DATE: 20240323
